FAERS Safety Report 6669025-X (Version None)
Quarter: 2010Q2

REPORT INFORMATION
  Report Type: 
  Country: None (occurrence: None)
  Receive Date: 20100402
  Receipt Date: 20100322
  Transmission Date: 20101027
  Serious: Yes (Other)
  Sender: FDA-Public Use
  Company Number: 009124

PATIENT
  Age: 15 Year
  Sex: Female

DRUGS (7)
  1. LACOSAMIDE [Suspect]
     Indication: CONVULSION
  2. LEVETIRACETAM [Suspect]
     Indication: CONVULSION
  3. FOSPHENYTOIN [Suspect]
     Indication: CONVULSION
  4. TOPIRAMATE [Suspect]
     Indication: CONVULSION
  5. OXCARBAZEPINE [Suspect]
  6. PENTOBARBITAL CAP [Suspect]
     Indication: CONVULSION
  7. PHENOBARBITAL AMINO (NOT SPECIFIED) [Suspect]

REACTIONS (4)
  - CONVULSION [None]
  - HYPONATRAEMIA [None]
  - NO THERAPEUTIC RESPONSE [None]
  - PANCREATIC ENZYMES INCREASED [None]
